FAERS Safety Report 23459066 (Version 2)
Quarter: 2024Q1

REPORT INFORMATION
  Report Type: Spontaneous
  Country: US (occurrence: US)
  Receive Date: 20240131
  Receipt Date: 20240207
  Transmission Date: 20240409
  Serious: No
  Sender: FDA-Public Use
  Company Number: US-862174955-ML2024-00302

PATIENT
  Age: 84 Year
  Sex: Male
  Weight: 93 kg

DRUGS (2)
  1. DORZOLAMIDE HYDROCHLORIDE OPHTHALMIC SOLUTION [Suspect]
     Active Substance: DORZOLAMIDE HYDROCHLORIDE
     Indication: Glaucoma
     Dosage: 01 DROP IN EACH EYE, ONCE A DAY IN MORNING.
     Route: 047
  2. LATANOPROST [Concomitant]
     Active Substance: LATANOPROST
     Indication: Product used for unknown indication
     Dosage: LATANOPROST IN THE EVENING

REACTIONS (3)
  - Eye irritation [Unknown]
  - Product storage error [Unknown]
  - Product quality issue [Unknown]
